FAERS Safety Report 23274956 (Version 1)
Quarter: 2023Q4

REPORT INFORMATION
  Report Type: Report from Study
  Country: BR (occurrence: BR)
  Receive Date: 20231208
  Receipt Date: 20231208
  Transmission Date: 20240110
  Serious: Yes (Hospitalization)
  Sender: FDA-Public Use
  Company Number: BR-BIOGEN-2023BI01239522

PATIENT
  Sex: Female
  Weight: 72 kg

DRUGS (1)
  1. TECFIDERA [Suspect]
     Active Substance: DIMETHYL FUMARATE
     Indication: Multiple sclerosis
     Route: 050

REACTIONS (2)
  - Cholelithiasis [Recovered/Resolved]
  - Uterine leiomyoma [Recovered/Resolved]

NARRATIVE: CASE EVENT DATE: 20210101
